FAERS Safety Report 6698178-2 (Version None)
Quarter: 2010Q2

REPORT INFORMATION
  Report Type: 
  Country: None (occurrence: None)
  Receive Date: 20100427
  Receipt Date: 20100420
  Transmission Date: 20101027
  Serious: Yes (Other)
  Sender: FDA-Public Use
  Company Number: JP-PFIZER INC-2010044261

PATIENT
  Age: 72 Year
  Sex: Male

DRUGS (15)
  1. ATARAX [Suspect]
     Dosage: 50 MG, DAILY
     Route: 042
  2. LEPETAN [Concomitant]
  3. PLETAL [Concomitant]
  4. CEROCRAL [Concomitant]
  5. BISOLVON [Concomitant]
  6. ANTOBRON [Concomitant]
  7. CRESTOR [Concomitant]
  8. ZETIA [Concomitant]
  9. IMIDAPRIL HYDROCHLORIDE [Concomitant]
  10. VESICARE [Concomitant]
  11. AMARYL [Concomitant]
  12. VOGLIBOSE [Concomitant]
  13. MAGNESIUM OXIDE [Concomitant]
  14. PANTOSIN [Concomitant]
  15. ADONA [Concomitant]

REACTIONS (2)
  - DIALYSIS [None]
  - RENAL IMPAIRMENT [None]
